FAERS Safety Report 6220334-8 (Version None)
Quarter: 2009Q2

REPORT INFORMATION
  Report Type: 
  Country: None (occurrence: None)
  Receive Date: 20090610
  Receipt Date: 20090528
  Transmission Date: 20091009
  Serious: Yes (Hospitalization, Other)
  Sender: FDA-Public Use
  Company Number: US-PFIZER INC-2009224046

PATIENT
  Sex: Female
  Weight: 73 kg

DRUGS (4)
  1. ALPRAZOLAM [Suspect]
     Indication: ANXIETY
     Dates: end: 20090413
  2. GABAPENTIN [Suspect]
     Indication: ANXIETY
     Dosage: 300 MG, 3X/DAY
     Dates: start: 20090501
  3. GABAPENTIN [Suspect]
     Indication: DEPRESSION
  4. GABAPENTIN [Suspect]
     Indication: DISCOMFORT

REACTIONS (19)
  - BLOOD PRESSURE INCREASED [None]
  - CHEST PAIN [None]
  - DISORIENTATION [None]
  - DRUG DEPENDENCE [None]
  - FATIGUE [None]
  - HYPERHIDROSIS [None]
  - HYPOACUSIS [None]
  - HYPOAESTHESIA [None]
  - HYPOREFLEXIA [None]
  - INSOMNIA [None]
  - LOW DENSITY LIPOPROTEIN INCREASED [None]
  - MENOPAUSE [None]
  - MENSTRUATION IRREGULAR [None]
  - MENTAL IMPAIRMENT [None]
  - PAIN IN EXTREMITY [None]
  - PANIC ATTACK [None]
  - PARAESTHESIA [None]
  - TRANSIENT ISCHAEMIC ATTACK [None]
  - VISION BLURRED [None]
